FAERS Safety Report 4357825-0 (Version None)
Quarter: 2004Q2

REPORT INFORMATION
  Report Type: 
  Country: None (occurrence: None)
  Receive Date: 20040512
  Receipt Date: 20040429
  Transmission Date: 20050107
  Serious: Yes (Death)
  Sender: FDA-Public Use
  Company Number: HQWYE661130APR04

PATIENT
  Sex: Male

DRUGS (2)
  1. EFFEXOR [Suspect]
     Dosage: ORAL
     Route: 048
  2. HEROIN (DIAMORPHINE) [Suspect]

REACTIONS (1)
  - DRUG INTERACTION [None]
